FAERS Safety Report 5246210-5 (Version None)
Quarter: 2007Q1

REPORT INFORMATION
  Report Type: 
  Country: None (occurrence: None)
  Receive Date: 20070221
  Receipt Date: 20070209
  Transmission Date: 20070707
  Serious: Yes (Death, Hospitalization)
  Sender: FDA-Public Use
  Company Number: 2006US000741

PATIENT
  Age: 52 Year
  Sex: Male

DRUGS (10)
  1. PROGRAF [Suspect]
     Indication: PROPHYLAXIS AGAINST TRANSPLANT REJECTION
     Dosage: 0.5 MG, BID, ORAL
     Route: 048
     Dates: start: 20051117, end: 20060616
  2. MYCOPHENOLATE MOFETIL [Suspect]
     Indication: PROPHYLAXIS AGAINST TRANSPLANT REJECTION
     Dosage: 1000 MG, BID, ORAL
     Route: 048
     Dates: start: 20051115, end: 20060410
  3. PEGASYS [Concomitant]
  4. RIBAVIRIN [Concomitant]
  5. CELEXA [Concomitant]
  6. ASPIRIN [Concomitant]
  7. PROTONIX [Concomitant]
  8. FENTANYL CITRATE [Concomitant]
  9. AMOXICILLIN (AMOXICILLIN TRIHYDRATE) [Concomitant]
  10. PHENERGAN (PROMETHAZINE HYDROCHLORIDE) [Concomitant]

REACTIONS (11)
  - BLOOD POTASSIUM DECREASED [None]
  - DEHYDRATION [None]
  - DISEASE RECURRENCE [None]
  - ENCEPHALOPATHY [None]
  - GASTROINTESTINAL HAEMORRHAGE [None]
  - HAEMATOCRIT DECREASED [None]
  - HAEMOGLOBIN DECREASED [None]
  - HEPATITIS C [None]
  - RENAL FAILURE [None]
  - SINUSITIS [None]
  - WHITE BLOOD CELL COUNT INCREASED [None]
